FAERS Safety Report 7862903-5 (Version None)
Quarter: 2011Q4

REPORT INFORMATION
  Report Type: 
  Country: None (occurrence: None)
  Receive Date: 20111027
  Receipt Date: 20101117
  Transmission Date: 20120403
  Serious: No
  Sender: FDA-Public Use
  Company Number: US-AMGEN-USASP2010004565

PATIENT
  Age: 35 Year
  Sex: Female

DRUGS (2)
  1. ENBREL [Suspect]
     Indication: PSORIATIC ARTHROPATHY
  2. ENBREL [Suspect]
     Indication: PSORIASIS
     Dosage: 50 MG, 2 TIMES/WK
     Dates: start: 20101021

REACTIONS (6)
  - NASOPHARYNGITIS [None]
  - EAR DISCOMFORT [None]
  - POLLAKIURIA [None]
  - OROPHARYNGEAL PAIN [None]
  - THERAPEUTIC RESPONSE DECREASED [None]
  - NASAL CONGESTION [None]
